FAERS Safety Report 5340020-6 (Version None)
Quarter: 2007Q2

REPORT INFORMATION
  Report Type: 
  Country: None (occurrence: None)
  Receive Date: 20070405
  Receipt Date: 20061218
  Transmission Date: 20071010
  Serious: No
  Sender: FDA-Public Use
  Company Number: US200611000569

PATIENT
  Age: 68 Year
  Sex: Male
  Weight: 81.6 kg

DRUGS (12)
  1. CYMBALTA [Suspect]
     Indication: NEUROPATHY PERIPHERAL
     Dosage: SEE IMAGE
     Route: 048
     Dates: start: 20061105, end: 20060101
  2. CYMBALTA [Suspect]
     Indication: NEUROPATHY PERIPHERAL
     Dosage: SEE IMAGE
     Route: 048
     Dates: start: 20061001, end: 20061001
  3. CYMBALTA [Suspect]
     Indication: NEUROPATHY PERIPHERAL
     Dosage: SEE IMAGE
     Route: 048
     Dates: start: 20061026, end: 20061027
  4. CYMBALTA [Suspect]
     Indication: NEUROPATHY PERIPHERAL
     Dosage: SEE IMAGE
     Route: 048
     Dates: start: 20061028
  5. CYMBALTA [Suspect]
     Indication: NEUROPATHY PERIPHERAL
     Dosage: SEE IMAGE
     Route: 048
     Dates: start: 20061201
  6. MULTIVITAMIN [Concomitant]
  7. VITAMIN E [Concomitant]
  8. GLUCOSAMINE W/CHONDROITIN (CHONDROITIN SULFATE, GLUCOSAMINE) [Concomitant]
  9. PRILOSECE (OMEPRAZOLE) [Concomitant]
  10. AMBIEN [Concomitant]
  11. CITRUCEL (METHYLCELLULOSE) [Concomitant]
  12. COLACE (DOCUSATE SODIUM) [Concomitant]

REACTIONS (8)
  - CONSTIPATION [None]
  - FEELING ABNORMAL [None]
  - FEELING HOT [None]
  - HEADACHE [None]
  - MUSCLE SPASMS [None]
  - MUSCULOSKELETAL STIFFNESS [None]
  - PARAESTHESIA [None]
  - VISION BLURRED [None]
